FAERS Safety Report 15147750 (Version 2)
Quarter: 2018Q4

REPORT INFORMATION
  Report Type: Spontaneous
  Country: US (occurrence: US)
  Receive Date: 20180716
  Receipt Date: 20181015
  Transmission Date: 20190204
  Serious: No
  Sender: FDA-Public Use
  Company Number: US-PFIZER INC-2016420364

PATIENT
  Age: 74 Year
  Sex: Female

DRUGS (7)
  1. LYRICA [Suspect]
     Active Substance: PREGABALIN
     Indication: CERVICAL SPINAL STENOSIS
     Dosage: 75 MG, 2X/DAY
     Route: 048
     Dates: start: 20160525
  2. VITAMIN D3 [Concomitant]
     Active Substance: CHOLECALCIFEROL
     Dosage: 2000 IU, 2X/DAY
     Route: 048
  3. LUMIGAN [Concomitant]
     Active Substance: BIMATOPROST
     Dosage: 1 GTT, AS NEEDED; (1 GTT IN EACH AFFECTED EYE QHS PRN)
     Route: 047
  4. NORCO [Concomitant]
     Active Substance: ACETAMINOPHEN\HYDROCODONE BITARTRATE
     Dosage: 1 DF, AS NEEDED; [HYDROCODONE BITARTRATE -5 MG]/[PARACETAMOL -325 MG]
     Route: 048
     Dates: start: 20160725
  5. DICLOFENAC SODIUM. [Concomitant]
     Active Substance: DICLOFENAC SODIUM
     Dosage: 75 MG, 2X/DAY
     Route: 048
     Dates: start: 20150525
  6. TIZANIDINE. [Concomitant]
     Active Substance: TIZANIDINE
     Dosage: UNK, HALF TAB TO 1 TAB EVERY 8 HOURS (AS NEEDED)
     Route: 048
     Dates: start: 20160525
  7. ALLEGRA D-12 HOUR [Concomitant]
     Active Substance: FEXOFENADINE HYDROCHLORIDE\PSEUDOEPHEDRINE HYDROCHLORIDE
     Dosage: 1 DF, 2X/DAY; [FEXOFENADINE HYDROCHLORIDE-60 MG]/[PSEUDOEPHEDRINE HYDROCHLORIDE-120 MG]
     Route: 048

REACTIONS (1)
  - Burning sensation [Unknown]
